FAERS Safety Report 12387406 (Version 2)
Quarter: 2016Q3

REPORT INFORMATION
  Report Type: Report from Study
  Country: BR (occurrence: BR)
  Receive Date: 20160519
  Receipt Date: 20160801
  Transmission Date: 20161109
  Serious: Yes (Hospitalization)
  Sender: FDA-Public Use
  Company Number: PHHY2015BR154474

PATIENT
  Sex: Female
  Weight: 54 kg

DRUGS (5)
  1. EXJADE [Suspect]
     Active Substance: DEFERASIROX
     Dosage: 2 DF, UNK (2 TABLETS OF 500 MG)
     Route: 065
  2. EXJADE [Suspect]
     Active Substance: DEFERASIROX
     Dosage: 750 MG, UNK (1 TABLETS OF 500 MG AND 1 TABLET OF 250 MG)
     Route: 065
     Dates: start: 2014
  3. EXJADE [Suspect]
     Active Substance: DEFERASIROX
     Dosage: 1 DF, UNK (1 TABLET OF 500 MG)
     Route: 065
  4. EXJADE [Suspect]
     Active Substance: DEFERASIROX
     Indication: THALASSAEMIA BETA
     Dosage: 10 MG/KG, QD (1 DF OF 500 MG)
     Route: 048
     Dates: start: 2009, end: 2013
  5. EXJADE [Suspect]
     Active Substance: DEFERASIROX
     Dosage: 1 DF, UNK (1 TABLET OF 500 MG)
     Route: 065

REACTIONS (5)
  - Malaise [Unknown]
  - Product taste abnormal [Recovered/Resolved]
  - Nausea [Unknown]
  - Aneurysm [Unknown]
  - Haemochromatosis [Recovering/Resolving]

NARRATIVE: CASE EVENT DATE: 2014
